FAERS Safety Report 8444722-4 (Version None)
Quarter: 2012Q2

REPORT INFORMATION
  Report Type: 
  Country: None (occurrence: None)
  Receive Date: 20120611
  Receipt Date: 20120530
  Transmission Date: 20120825
  Serious: Yes (Other)
  Sender: FDA-Public Use
  Company Number: ACO_22647_2010

PATIENT
  Age: 57 Year
  Sex: Female

DRUGS (16)
  1. REGLAN [Concomitant]
  2. VALIUM [Concomitant]
  3. CELEXA [Concomitant]
  4. UROQUID ACID (METHENAMINE MANDELATE, PHOSPHORIC ACID SODIUM) [Concomitant]
  5. OXYCODONE HCL [Concomitant]
  6. VESICARE [Concomitant]
  7. COUMADIN [Concomitant]
  8. PROVIGIL [Concomitant]
  9. AMPYRA [Suspect]
     Indication: MULTIPLE SCLEROSIS
     Dosage: 10 MG, BID, ORAL
     Route: 048
     Dates: start: 20100616, end: 20100707
  10. ATIVAN [Concomitant]
  11. BACLOFEN [Concomitant]
  12. ADVAIR HFA [Concomitant]
  13. AMBIEN [Concomitant]
  14. COMBIVENT [Concomitant]
  15. MS CONTIN [Concomitant]
  16. ZANAFLEX [Concomitant]

REACTIONS (7)
  - BALANCE DISORDER [None]
  - URINARY TRACT INFECTION [None]
  - DEATH OF PET [None]
  - FALL [None]
  - BEDRIDDEN [None]
  - ASTHENIA [None]
  - EMOTIONAL DISTRESS [None]
